FAERS Safety Report 12000724 (Version 1)
Quarter: 2016Q1

REPORT INFORMATION
  Report Type: Spontaneous
  Country: US (occurrence: US)
  Receive Date: 20160204
  Receipt Date: 20160204
  Transmission Date: 20160526
  Serious: No
  Sender: FDA-Public Use
  Company Number: US-PFIZER INC-2016046264

PATIENT
  Age: 62 Year
  Sex: Female
  Weight: 84.35 kg

DRUGS (1)
  1. GABAPENTIN. [Suspect]
     Active Substance: GABAPENTIN
     Indication: BURNING SENSATION
     Dosage: 300 MG, 3X/DAY

REACTIONS (3)
  - Drug ineffective for unapproved indication [Unknown]
  - Condition aggravated [Unknown]
  - Burning sensation [Unknown]
